FAERS Safety Report 20758798 (Version 1)
Quarter: 2022Q2

REPORT INFORMATION
  Report Type: Report from Study
  Country: US (occurrence: US)
  Receive Date: 20220427
  Receipt Date: 20220427
  Transmission Date: 20220721
  Serious: No
  Sender: FDA-Public Use
  Company Number: US-KYOWAKIRIN-2022BKK005798

PATIENT

DRUGS (2)
  1. CRYSVITA [Suspect]
     Active Substance: BUROSUMAB-TWZA
     Indication: Hereditary hypophosphataemic rickets
     Dosage: 30 MG, EVERY 2 WEEKS
     Route: 065
     Dates: start: 20211222
  2. CRYSVITA [Suspect]
     Active Substance: BUROSUMAB-TWZA
     Dosage: 30 MG, EVERY 2 WEEKS
     Route: 065
     Dates: start: 20190514

REACTIONS (4)
  - Chest pain [Unknown]
  - Hypersensitivity [Unknown]
  - Asthma [Unknown]
  - Cough [Unknown]
